FAERS Safety Report 8109155-9 (Version None)
Quarter: 2012Q1

REPORT INFORMATION
  Report Type: 
  Country: None (occurrence: None)
  Receive Date: 20120202
  Receipt Date: 20120103
  Transmission Date: 20120608
  Serious: No
  Sender: FDA-Public Use
  Company Number: US-AMGEN-USASP2012000226

PATIENT
  Age: 48 Year
  Sex: Female

DRUGS (1)
  1. ENBREL [Suspect]
     Indication: PSORIATIC ARTHROPATHY
     Dosage: 25 MG, 2 TIMES/WK
     Dates: start: 20040301

REACTIONS (5)
  - FOOT DEFORMITY [None]
  - BACK PAIN [None]
  - NODULE [None]
  - PSORIATIC ARTHROPATHY [None]
  - PAIN IN EXTREMITY [None]
